FAERS Safety Report 6452664-9 (Version None)
Quarter: 2009Q4

REPORT INFORMATION
  Report Type: 
  Country: None (occurrence: None)
  Receive Date: 20091116
  Receipt Date: 20091030
  Transmission Date: 20100525
  Serious: Yes (Hospitalization)
  Sender: FDA-Public Use
  Company Number: DSA_41975_2009

PATIENT
  Sex: Female

DRUGS (10)
  1. VOXRA - BUPROPION HYDROCHLORIDE [Suspect]
     Indication: BIPOLAR I DISORDER
     Dosage: (300 MG FREQUENCY UNSPECIFIED ORAL), (DF)
     Route: 048
     Dates: start: 20090701, end: 20090730
  2. VOXRA - BUPROPION HYDROCHLORIDE [Suspect]
     Indication: BIPOLAR I DISORDER
     Dosage: (300 MG FREQUENCY UNSPECIFIED ORAL), (DF)
     Route: 048
     Dates: start: 20090916
  3. LYRICA [Suspect]
     Indication: DRUG USE FOR UNKNOWN INDICATION
     Dosage: (DF ORAL)
     Dates: end: 20090730
  4. LAMOTRIGINE [Suspect]
     Indication: DRUG USE FOR UNKNOWN INDICATION
     Dosage: (DF ORAL)
     Route: 048
     Dates: start: 20090101, end: 20090730
  5. ZOPICLONE [Concomitant]
  6. SERTRALINE HCL [Concomitant]
  7. PROMETHAZINE HCL [Concomitant]
  8. METHOTRIMEPRAZINE /00038601/ [Concomitant]
  9. TRIMEPRAZINE TARTRATE [Concomitant]
  10. PARACETAMOL [Concomitant]

REACTIONS (8)
  - COMPARTMENT SYNDROME [None]
  - HAEMODIALYSIS [None]
  - HEADACHE [None]
  - POSTOPERATIVE WOUND INFECTION [None]
  - RHABDOMYOLYSIS [None]
  - TRANSAMINASES INCREASED [None]
  - TRANSPLANT [None]
  - TREATMENT FAILURE [None]
